FAERS Safety Report 5618046-4 (Version None)
Quarter: 2008Q1

REPORT INFORMATION
  Report Type: 
  Country: None (occurrence: None)
  Receive Date: 20080207
  Receipt Date: 20070921
  Transmission Date: 20080703
  Serious: No
  Sender: FDA-Public Use
  Company Number: A0683535A

PATIENT
  Age: 33 Year
  Sex: Female

DRUGS (2)
  1. PAROXETINE [Suspect]
     Dosage: 10MG PER DAY
     Route: 048
     Dates: start: 20070524
  2. PRENATAL VITAMINS [Concomitant]

REACTIONS (2)
  - DRUG EXPOSURE VIA BREAST MILK [None]
  - WEIGHT INCREASED [None]
